FAERS Safety Report 20044978 (Version 1)
Quarter: 2021Q4

REPORT INFORMATION
  Report Type: Spontaneous
  Country: US (occurrence: US)
  Receive Date: 20211108
  Receipt Date: 20211108
  Transmission Date: 20220303
  Serious: Yes (Other)
  Sender: FDA-Public Use
  Company Number: US-BAYER-2021A239960

PATIENT
  Age: 87 Year
  Sex: Female

DRUGS (1)
  1. ASPIRIN [Suspect]
     Active Substance: ASPIRIN
     Dosage: UNK UNK, OM
     Route: 065

REACTIONS (3)
  - Skin haemorrhage [Unknown]
  - Surgery [Unknown]
  - Therapeutic response unexpected [None]
